FAERS Safety Report 23448575 (Version 1)
Quarter: 2024Q1

REPORT INFORMATION
  Report Type: Spontaneous
  Country: US (occurrence: US)
  Receive Date: 20240127
  Receipt Date: 20240127
  Transmission Date: 20240410
  Serious: No
  Sender: FDA-Public Use
  Company Number: US-TARSUS PHARMACEUTICALS-TSP-US-2023-000035

PATIENT
  Age: 65 Year
  Sex: Female

DRUGS (1)
  1. XDEMVY [Suspect]
     Active Substance: LOTILANER
     Indication: Blepharitis
     Dosage: 1 DROP, BID (INTO BOTH EYES FOR SIX WEEK)
     Route: 065

REACTIONS (3)
  - Asthenopia [Recovered/Resolved]
  - Eye discharge [Recovered/Resolved]
  - Instillation site irritation [Recovered/Resolved]
